FAERS Safety Report 9246939 (Version 1)
Quarter: 2013Q2

REPORT INFORMATION
  Report Type: Report from Study
  Country: US (occurrence: US)
  Receive Date: 20130422
  Receipt Date: 20130422
  Transmission Date: 20140414
  Serious: No
  Sender: FDA-Public Use
  Company Number: US-ABBOTT-13P-163-1069982-00

PATIENT
  Age: 10 Year
  Sex: Female
  Weight: 52.21 kg

DRUGS (11)
  1. LUPRON DEPOT-PED [Suspect]
     Indication: PRECOCIOUS PUBERTY
     Dates: start: 201111
  2. METHOTREXATE [Concomitant]
     Indication: JUVENILE IDIOPATHIC ARTHRITIS
     Route: 050
  3. PROZAC [Concomitant]
     Indication: ANXIETY
  4. PROZAC [Concomitant]
     Indication: DEPRESSION
  5. PLAQUENIL [Concomitant]
     Indication: JUVENILE IDIOPATHIC ARTHRITIS
     Dosage: IN THE MORNING
  6. VOLTAREN GEL [Concomitant]
     Indication: INJECTION SITE PAIN
     Dosage: UP TO 4 GRAMS A DAY
  7. FOLIC ACID [Concomitant]
     Indication: PRODUCT USED FOR UNKNOWN INDICATION
     Dosage: IN THE MORNING
  8. ENBREL [Concomitant]
     Indication: JUVENILE IDIOPATHIC ARTHRITIS
     Dates: start: 201208
  9. ABILIFY [Concomitant]
     Indication: ANXIETY
     Dates: start: 201202
  10. ABILIFY [Concomitant]
     Indication: DEPRESSION
  11. CLONIDINE [Concomitant]
     Indication: PRODUCT USED FOR UNKNOWN INDICATION
     Dosage: 0.05 MG IN THE MORNING, 0.1 MG AT NIGHT
     Dates: start: 201206

REACTIONS (2)
  - Gait disturbance [Unknown]
  - Injection site pain [Not Recovered/Not Resolved]
